FAERS Safety Report 19196467 (Version 3)
Quarter: 2021Q2

REPORT INFORMATION
  Report Type: Report from Study
  Country: US (occurrence: US)
  Receive Date: 20210429
  Receipt Date: 20210607
  Transmission Date: 20210717
  Serious: Yes (Other)
  Sender: FDA-Public Use
  Company Number: NVSC2021US094476

PATIENT
  Sex: Female

DRUGS (1)
  1. TABRECTA [Suspect]
     Active Substance: CAPMATINIB
     Indication: NON-SMALL CELL LUNG CANCER
     Dosage: UNK UNK, UNKNOWN
     Route: 065

REACTIONS (7)
  - Asthenia [Unknown]
  - Lung disorder [Unknown]
  - Dizziness [Unknown]
  - Cough [Unknown]
  - Pulmonary oedema [Unknown]
  - Decreased appetite [Unknown]
  - Sputum discoloured [Unknown]
